FAERS Safety Report 16227689 (Version 4)
Quarter: 2020Q1

REPORT INFORMATION
  Report Type: Spontaneous
  Country: US (occurrence: US)
  Receive Date: 20190423
  Receipt Date: 20200303
  Transmission Date: 20200409
  Serious: Yes (Other)
  Sender: FDA-Public Use
  Company Number: US-PFIZER INC-2019169966

PATIENT
  Age: 66 Year
  Sex: Female

DRUGS (21)
  1. TOFRANIL [Concomitant]
     Active Substance: IMIPRAMINE HYDROCHLORIDE
     Dosage: 25 MG, 2X/DAY
     Route: 048
  2. SINGULAIR [Concomitant]
     Active Substance: MONTELUKAST SODIUM
     Dosage: 10 MG, DAILY
     Route: 048
  3. LYRICA [Concomitant]
     Active Substance: PREGABALIN
     Dosage: 200 MG, 3X/DAY
     Route: 048
     Dates: start: 20200116
  4. TRAZODONE [Concomitant]
     Active Substance: TRAZODONE HYDROCHLORIDE
     Dosage: 150 MG, DAILY (TAKE 1 TABLET BY MOUTH AT BEDTIME)
     Route: 048
  5. CORGARD [Concomitant]
     Active Substance: NADOLOL
     Dosage: 20 MG, 1X/DAY
     Route: 048
  6. TALWIN [Suspect]
     Active Substance: PENTAZOCINE LACTATE
     Indication: PAIN
     Dosage: 1 DF, UNK
     Route: 048
  7. MELOXICAM. [Concomitant]
     Active Substance: MELOXICAM
     Dosage: 16 MG, AS NEEDED (TAKE ONE TABLET BY MOUTH ONCE DAILY )
     Route: 048
  8. PROVERA [Concomitant]
     Active Substance: MEDROXYPROGESTERONE ACETATE
     Dosage: 5 MG, 1X/DAY
     Route: 048
  9. OMEGA 3 FISH OIL [DOCOSAHEXAENOIC ACID;EICOSAPENTAENOIC ACID] [Concomitant]
     Dosage: 1400 MG, 1X/DAY
     Route: 048
  10. ATIVAN [Concomitant]
     Active Substance: LORAZEPAM
     Indication: ANXIETY
     Dosage: UNK UNK, AS NEEDED (1/4 TABLET TID (THRICE A DAY)
     Route: 048
  11. MIRALAX [Concomitant]
     Active Substance: POLYETHYLENE GLYCOL 3350
     Dosage: UNK (17 GRAM /TAKE 1 PACKET BY MOUTH ONCE A DAY. MAY INCREASE TO TWICE A DAY IF NEEDED)
     Route: 048
  12. IMITREX [Concomitant]
     Active Substance: SUMATRIPTAN SUCCINATE
     Dosage: 50 MG, AS NEEDED (TAKE 1 TAB BY MOUTH TAKE AS NEEDED)
     Route: 048
  13. ROBINUL [Concomitant]
     Active Substance: GLYCOPYRROLATE
     Indication: HYPERHIDROSIS
     Dosage: 1 MG, 2X/DAY
     Route: 048
  14. SYNTHROID [Concomitant]
     Active Substance: LEVOTHYROXINE SODIUM
     Dosage: 125 UG, 1X/DAY
     Route: 048
  15. AMOXIL [Concomitant]
     Active Substance: AMOXICILLIN
     Dosage: UNK (TAKE 4 PILLS 1 HOUR PRIOR TO DENTIST APPOINTMENT)
     Route: 048
  16. FLONASE [Concomitant]
     Active Substance: FLUTICASONE PROPIONATE
     Dosage: UNK (USE 2 SPRAYS IN EACH NOSTRIL DAILY)
  17. PRISTIQ EXTENDED-RELEASE [Concomitant]
     Active Substance: DESVENLAFAXINE SUCCINATE
     Dosage: 100 MG, 1X/DAY (TAKE 1 TAB BY MOUTH ONCE A DAY)
     Route: 048
  18. ULTRAM ER [Concomitant]
     Active Substance: TRAMADOL HYDROCHLORIDE
     Dosage: 50 MG, UNK
     Route: 048
  19. LIPITOR [Concomitant]
     Active Substance: ATORVASTATIN CALCIUM
     Dosage: 40 MG, DAILY
     Route: 048
  20. FLEXERIL [Concomitant]
     Active Substance: CYCLOBENZAPRINE HYDROCHLORIDE
     Dosage: UNK UNK, AS NEEDED (TAKE ONE TO TWO TABLETS BY MOUTH EVERY 8 HOURS AS NEEDED)
     Route: 048
  21. ESTRACE [Concomitant]
     Active Substance: ESTRADIOL
     Dosage: 1 MG, 1X/DAY
     Route: 048

REACTIONS (5)
  - Hallucination [Unknown]
  - Drug hypersensitivity [Unknown]
  - Off label use [Unknown]
  - Product use issue [Unknown]
  - Mental disorder [Unknown]

NARRATIVE: CASE EVENT DATE: 20161011
